FAERS Safety Report 5102067-4 (Version None)
Quarter: 2006Q3

REPORT INFORMATION
  Report Type: 
  Country: None (occurrence: None)
  Receive Date: 20060907
  Receipt Date: 20060831
  Transmission Date: 20061208
  Serious: Yes (Other)
  Sender: FDA-Public Use
  Company Number: 2006105758

PATIENT
  Sex: Female

DRUGS (2)
  1. DRAMAMINE [Suspect]
     Dosage: ORAL
     Route: 048
     Dates: start: 20060831
  2. ETHANOL (ETHANOL) [Suspect]
     Dosage: ORAL
     Route: 048
     Dates: start: 20060831

REACTIONS (2)
  - ALCOHOL USE [None]
  - LOSS OF CONSCIOUSNESS [None]
